FAERS Safety Report 7471661-8 (Version None)
Quarter: 2011Q2

REPORT INFORMATION
  Report Type: 
  Country: None (occurrence: None)
  Receive Date: 20110502
  Receipt Date: 20110418
  Transmission Date: 20111010
  Serious: Yes (Other)
  Sender: FDA-Public Use
  Company Number: 1000020350

PATIENT
  Age: 70 Year
  Sex: Female

DRUGS (3)
  1. BISOPROLOL FUMARATE [Suspect]
     Dosage: 5 MG (5 MG, 1 IN 1 D),ORAL, 1.25 (1.25 ,1 IN 1 D),ORAL
     Route: 048
     Dates: start: 20080701, end: 20080701
  2. BISOPROLOL FUMARATE [Suspect]
     Dosage: 5 MG (5 MG, 1 IN 1 D),ORAL, 1.25 (1.25 ,1 IN 1 D),ORAL
     Route: 048
     Dates: start: 20110219, end: 20110303
  3. NEBIVOLOL HCL [Suspect]
     Indication: ARRHYTHMIA
     Dosage: .25 MG (1.25 MG, 1IN 1 D),ORAL
     Route: 048
     Dates: start: 20090101, end: 20110114

REACTIONS (4)
  - LEUKOPENIA [None]
  - DRUG INEFFECTIVE [None]
  - NEUTROPENIA [None]
  - BRADYCARDIA [None]
